FAERS Safety Report 14814756 (Version 2)
Quarter: 2019Q2

REPORT INFORMATION
  Report Type: Spontaneous
  Country: DE (occurrence: DE)
  Receive Date: 20180426
  Receipt Date: 20190523
  Transmission Date: 20190711
  Serious: Yes (Hospitalization, Other)
  Sender: FDA-Public Use
  Company Number: DE-AUROBINDO-AUR-APL-2018-022441

PATIENT

DRUGS (15)
  1. FLUPIRTINE MALEATE [Suspect]
     Active Substance: FLUPIRTINE MALEATE
     Indication: PAIN
     Dosage: 400 MILLIGRAM, ONCE A DAY
     Route: 065
  2. KATADOLON S [Suspect]
     Active Substance: FLUPIRTINE
     Indication: PAIN
     Dosage: 400 MILLIGRAM, ONCE A DAY
     Route: 065
     Dates: start: 20080227, end: 20080407
  3. TRAMADOLOR [Suspect]
     Active Substance: TRAMADOL
     Indication: PAIN
     Dosage: 300 MILLIGRAM, ONCE A DAY
     Route: 048
     Dates: start: 20080227, end: 20080407
  4. FLUPIRTINA [Suspect]
     Active Substance: FLUPIRTINE MALEATE
     Indication: OSTEOPOROSIS
     Dosage: 400 MILLIGRAM, ONCE A DAY
  5. DICLOFENAC [Concomitant]
     Active Substance: DICLOFENAC
     Indication: PRODUCT USED FOR UNKNOWN INDICATION
     Dosage: UNKNOWN
     Route: 065
  6. TRAMADOL HEXAL [Suspect]
     Active Substance: TRAMADOL
     Indication: PAIN
     Dosage: AND CASE 5 CASE 1 AND CASE 2 CASE 1 CASE 1 (CALCIUM/VITAMIN D) CASE 1, 2, AND 6 CASE 1 CASE 1 CASE 1
     Route: 048
     Dates: start: 20080227, end: 20080407
  7. FLUPIRTINE MALEATE [Suspect]
     Active Substance: FLUPIRTINE MALEATE
     Indication: OSTEOPOROSIS
     Dosage: 400 MILLIGRAM, ONCE A DAY
     Route: 048
     Dates: start: 20080227, end: 20080407
  8. L-THYROXIN [Concomitant]
     Active Substance: LEVOTHYROXINE SODIUM
     Indication: PRODUCT USED FOR UNKNOWN INDICATION
     Dosage: AND CASE 5 CASE 1 AND CASE 2 CASE 1 CASE 1 (CALCIUM/VITAMIN D) CASE 1, 2, AND 6 CASE 1 CASE 1 CASE 1
     Route: 065
  9. VITAMIN D3 CALCIUM [Concomitant]
     Active Substance: CALCIUM\CHOLECALCIFEROL
     Indication: PRODUCT USED FOR UNKNOWN INDICATION
     Dosage: NI
     Route: 065
  10. OMEPRAZOLE. [Suspect]
     Active Substance: OMEPRAZOLE
     Indication: PRODUCT USED FOR UNKNOWN INDICATION
     Dosage: AND CASE 5 CASE 1 AND CASE 2 CASE 1 CASE 1 (CALCIUM/VITAMIN D) CASE 1, 2, AND 6 CASE 1 CASE 1 CASE 1
     Route: 065
  11. MACROGOL [Concomitant]
     Active Substance: POLYETHYLENE GLYCOLS
     Indication: PRODUCT USED FOR UNKNOWN INDICATION
     Dosage: AND CASE 5 CASE 1 AND CASE 2 CASE 1 CASE 1 (CALCIUM/VITAMIN D) CASE 1, 2, AND 6 CASE 1 CASE 1 CASE 1
     Route: 065
  12. IBUPROFEN. [Concomitant]
     Active Substance: IBUPROFEN
     Indication: PRODUCT USED FOR UNKNOWN INDICATION
     Dosage: AND CASE 5 CASE 1 AND CASE 2 CASE 1 CASE 1 (CALCIUM/VITAMIN D) CASE 1, 2, AND 6 CASE 1 CASE 1 CASE 1
     Route: 065
  13. CELEBREX [Suspect]
     Active Substance: CELECOXIB
     Indication: PAIN
     Dosage: 100 MILLIGRAM, 1 WEEK
     Route: 048
     Dates: start: 20080227, end: 20080407
  14. SIMVASTATIN. [Suspect]
     Active Substance: SIMVASTATIN
     Indication: PRODUCT USED FOR UNKNOWN INDICATION
     Dosage: AND CASE 5 CASE 1 AND CASE 2 CASE 1 CASE 1 (CALCIUM/VITAMIN D) CASE 1, 2, AND 6 CASE 1 CASE 1 CASE 1
     Route: 065
  15. METAMIZOLE [Concomitant]
     Active Substance: METAMIZOLE
     Indication: PRODUCT USED FOR UNKNOWN INDICATION
     Dosage: UNKNOWN
     Route: 065

REACTIONS (8)
  - Fatigue [Recovering/Resolving]
  - Alanine aminotransferase increased [Recovering/Resolving]
  - Blood alkaline phosphatase increased [Recovering/Resolving]
  - Chromaturia [Recovering/Resolving]
  - International normalised ratio abnormal [Recovering/Resolving]
  - Drug-induced liver injury [Recovering/Resolving]
  - Hepatic necrosis [Recovered/Resolved with Sequelae]
  - Aspartate aminotransferase increased [Recovering/Resolving]

NARRATIVE: CASE EVENT DATE: 20080408
